FAERS Safety Report 4507054-2 (Version None)
Quarter: 2004Q4

REPORT INFORMATION
  Report Type: 
  Country: None (occurrence: None)
  Receive Date: 20041122
  Receipt Date: 20041116
  Transmission Date: 20050328
  Serious: Yes (Hospitalization)
  Sender: FDA-Public Use
  Company Number: FR-MERCK-0411FRA00058

PATIENT
  Age: 77 Year
  Sex: Male
  Weight: 55 kg

DRUGS (14)
  1. PROSCAR [Suspect]
     Route: 048
     Dates: start: 20040701, end: 20041008
  2. CARBIMAZOLE [Suspect]
     Route: 048
     Dates: start: 20040701, end: 20041012
  3. FENOTEROL HYDROBROMIDE AND IPRATROPIUM BROMIDE [Concomitant]
     Route: 065
  4. FLUTICASONE PROPIONATE AND SALMETEROL XINAFOATE [Concomitant]
     Route: 065
  5. NICORANDIL [Concomitant]
     Route: 065
  6. FUROSEMIDE [Concomitant]
     Route: 065
  7. PERINDOPRIL ERBUMINE [Concomitant]
     Route: 065
  8. CLOPIDOGREL BISULFATE [Concomitant]
     Route: 065
  9. OMEPRAZOLE [Concomitant]
     Route: 065
  10. ZOLPIDEM TARTRATE [Concomitant]
     Route: 065
  11. BROMAZEPAM [Concomitant]
     Route: 065
  12. ACETAMINOPHEN AND PROPOXYPHENE HYDROCHLORIDE [Concomitant]
     Route: 065
  13. ZOCOR [Concomitant]
     Route: 065
  14. EPOETIN ALFA [Concomitant]
     Route: 065

REACTIONS (2)
  - EOSINOPHILIA [None]
  - PRURITUS [None]
